FAERS Safety Report 25202479 (Version 1)
Quarter: 2025Q2

REPORT INFORMATION
  Report Type: Spontaneous
  Country: US (occurrence: None)
  Receive Date: 20250415
  Receipt Date: 20250415
  Transmission Date: 20250716
  Serious: Yes (Hospitalization)
  Sender: FDA-CTU
  Company Number: None

PATIENT
  Sex: Female

DRUGS (4)
  1. OPSUMIT [Suspect]
     Active Substance: MACITENTAN
     Indication: Pulmonary arterial hypertension
     Dosage: FREQUENCY : DAILY;?
     Route: 048
     Dates: start: 20210605
  2. TADALAFIL [Concomitant]
     Active Substance: TADALAFIL
  3. NUCALA [Concomitant]
     Active Substance: MEPOLIZUMAB
  4. REMODULIN [Suspect]
     Active Substance: TREPROSTINIL

REACTIONS (1)
  - Dyspnoea [None]
